FAERS Safety Report 21660941 (Version 2)
Quarter: 2023Q1

REPORT INFORMATION
  Report Type: Report from Study
  Country: BR (occurrence: BR)
  Receive Date: 20221130
  Receipt Date: 20230316
  Transmission Date: 20230418
  Serious: Yes (Other)
  Sender: FDA-Public Use
  Company Number: BR-CELLTRION INC.-2022BR020104

PATIENT

DRUGS (2)
  1. INFLIXIMAB [Suspect]
     Active Substance: INFLIXIMAB
     Indication: Ankylosing spondylitis
     Dosage: 5 AMPOULES EVERY 45 DAYS
     Route: 042
  2. GLIFAGE [METFORMIN] [Concomitant]
     Indication: Diabetes mellitus

REACTIONS (7)
  - Surgery [Unknown]
  - Carpal tunnel syndrome [Unknown]
  - Neck pain [Unknown]
  - Groin pain [Unknown]
  - Back pain [Unknown]
  - Intentional dose omission [Unknown]
  - Off label use [Unknown]
